FAERS Safety Report 6035676-9 (Version None)
Quarter: 2009Q1

REPORT INFORMATION
  Report Type: 
  Country: None (occurrence: None)
  Receive Date: 20090112
  Receipt Date: 20090112
  Transmission Date: 20090719
  Serious: Yes (Life-Threatening)
  Sender: FDA-Public Use
  Company Number: None

PATIENT
  Age: 64 Year
  Sex: Female
  Weight: 81.6475 kg

DRUGS (1)
  1. FLOVENT HFA [Suspect]
     Indication: ASTHMA
     Dosage: 2 PUFFS AM + PM
     Dates: start: 20080601, end: 20081228

REACTIONS (10)
  - ALOPECIA [None]
  - BACK DISORDER [None]
  - CHEST X-RAY ABNORMAL [None]
  - DYSPHONIA [None]
  - FATIGUE [None]
  - FEELING ABNORMAL [None]
  - MUSCULOSKELETAL DISORDER [None]
  - OXYGEN SATURATION DECREASED [None]
  - PYREXIA [None]
  - WEIGHT INCREASED [None]
